FAERS Safety Report 21302271 (Version 1)
Quarter: 2022Q3

REPORT INFORMATION
  Report Type: Spontaneous
  Country: US (occurrence: None)
  Receive Date: 20220906
  Receipt Date: 20220906
  Transmission Date: 20221027
  Serious: Yes (unspecified)
  Sender: FDA-Public Use
  Company Number: None

PATIENT
  Age: 32 Year
  Sex: Female
  Weight: 123.3 kg

DRUGS (3)
  1. OZEMPIC [Suspect]
     Active Substance: SEMAGLUTIDE
     Indication: Weight control
     Dosage: OTHER QUANTITY : 1 INJECTION(S);?OTHER FREQUENCY : 1X A WEEK;?
     Route: 058
     Dates: start: 20220822, end: 20220902
  2. OZEMPIC [Suspect]
     Active Substance: SEMAGLUTIDE
     Indication: Polycystic ovaries
  3. WELLBUTRIN [Concomitant]
     Active Substance: BUPROPION HYDROCHLORIDE

REACTIONS (16)
  - Dehydration [None]
  - Vomiting [None]
  - Diarrhoea [None]
  - Therapeutic product effect incomplete [None]
  - Heart rate increased [None]
  - Body temperature decreased [None]
  - Chills [None]
  - Abdominal pain upper [None]
  - Abdominal pain upper [None]
  - Gastrooesophageal reflux disease [None]
  - Flatulence [None]
  - Weight decreased [None]
  - Blood glucose decreased [None]
  - Dizziness [None]
  - Fatigue [None]
  - Poisoning [None]

NARRATIVE: CASE EVENT DATE: 20220829
